FAERS Safety Report 18207296 (Version 1)
Quarter: 2020Q3

REPORT INFORMATION
  Report Type: Spontaneous
  Country: US (occurrence: US)
  Receive Date: 20200827
  Receipt Date: 20200827
  Transmission Date: 20201103
  Serious: No
  Sender: FDA-Public Use
  Company Number: None

PATIENT
  Age: 44 Year
  Sex: Female

DRUGS (1)
  1. HUMIRA [Suspect]
     Active Substance: ADALIMUMAB
     Indication: COLITIS
     Dosage: ?   OTHER DOSE:160MG D1 THER 80MG D15?
     Route: 058
     Dates: start: 20200507, end: 20200601

REACTIONS (2)
  - Therapy interrupted [None]
  - Hypoaesthesia [None]

NARRATIVE: CASE EVENT DATE: 20200601
